FAERS Safety Report 15760064 (Version 1)
Quarter: 2018Q4

REPORT INFORMATION
  Report Type: Spontaneous
  Country: CZ (occurrence: CZ)
  Receive Date: 20181226
  Receipt Date: 20181226
  Transmission Date: 20190205
  Serious: Yes (Life-Threatening, Hospitalization)
  Sender: FDA-Public Use
  Company Number: CZ-ROCHE-2231386

PATIENT
  Age: 30 Year
  Sex: Female
  Weight: 71.97 kg

DRUGS (10)
  1. NATRII CHLORIDUM [Suspect]
     Active Substance: SODIUM CHLORIDE
     Indication: GENERAL ANAESTHESIA
     Dosage: UNK
     Route: 065
     Dates: start: 20160621, end: 20160621
  2. IBUPROFEN. [Suspect]
     Active Substance: IBUPROFEN
     Indication: GENERAL ANAESTHESIA
     Route: 042
     Dates: start: 20160621, end: 20160621
  3. PROPOFOL. [Suspect]
     Active Substance: PROPOFOL
     Indication: GENERAL ANAESTHESIA
     Route: 042
     Dates: start: 20160621, end: 20160621
  4. MIDAZOLAM [Suspect]
     Active Substance: MIDAZOLAM HYDROCHLORIDE
     Indication: GENERAL ANAESTHESIA
     Dosage: UNK UNK,UNK
     Route: 065
     Dates: start: 20160621, end: 20160621
  5. PARALEN (ACETAMINOPHEN) [Suspect]
     Active Substance: ACETAMINOPHEN
     Indication: GENERAL ANAESTHESIA
     Dosage: 500 MG,UNK
     Route: 054
     Dates: start: 20160621, end: 20160621
  6. DIAZEPAM. [Suspect]
     Active Substance: DIAZEPAM
     Indication: GENERAL ANAESTHESIA
     Route: 065
     Dates: start: 20160621, end: 20160621
  7. RAPIFEN (ALFENTANIL HYDROCHLORIDE) [Suspect]
     Active Substance: ALFENTANIL HYDROCHLORIDE
     Indication: GENERAL ANAESTHESIA
     Dosage: UNK
     Route: 042
     Dates: start: 20160621, end: 20160621
  8. ATROPINE SULFATE MONOHYDRATE [Suspect]
     Active Substance: ATROPINE SULFATE
     Indication: GENERAL ANAESTHESIA
     Route: 065
     Dates: start: 20160621, end: 20160621
  9. NOVALGIN (DIPYRONE) [Suspect]
     Active Substance: DIPYRONE
     Indication: GENERAL ANAESTHESIA
     Route: 065
     Dates: start: 20160621, end: 20160621
  10. NATRII CHLORIDUM [Suspect]
     Active Substance: SODIUM CHLORIDE
     Dosage: 0.9 % BRAUN
     Route: 065
     Dates: start: 20160621, end: 20160621

REACTIONS (10)
  - Expired product administered [Unknown]
  - Peritoneal haemorrhage [Recovered/Resolved]
  - Product quality issue [Unknown]
  - Pleural effusion [Recovered/Resolved]
  - Vomiting [Recovered/Resolved]
  - Dyspnoea [Recovered/Resolved]
  - Disseminated intravascular coagulation [Recovered/Resolved]
  - Intra-abdominal haemorrhage [Recovered/Resolved]
  - Dizziness [Recovered/Resolved]
  - Abdominal pain lower [Recovered/Resolved]

NARRATIVE: CASE EVENT DATE: 20160621
